FAERS Safety Report 7729264-3 (Version None)
Quarter: 2011Q3

REPORT INFORMATION
  Report Type: 
  Country: None (occurrence: None)
  Receive Date: 20110906
  Receipt Date: 20110902
  Transmission Date: 20111222
  Serious: No
  Sender: FDA-Public Use
  Company Number: US-PFIZER INC-2011206125

PATIENT
  Age: 4 Month
  Sex: Male
  Weight: 5.442 kg

DRUGS (2)
  1. PEDIATRIC ADVIL [Suspect]
     Indication: PYREXIA
  2. PEDIATRIC ADVIL [Suspect]
     Indication: HEADACHE
     Dosage: 1.25 ML, DAILY
     Route: 048
     Dates: start: 20110902

REACTIONS (1)
  - FATIGUE [None]
